FAERS Safety Report 8595178-2 (Version None)
Quarter: 2012Q3

REPORT INFORMATION
  Report Type: 
  Country: None (occurrence: None)
  Receive Date: 20120815
  Receipt Date: 20120326
  Transmission Date: 20120928
  Serious: Yes (Other)
  Sender: FDA-Public Use
  Company Number: MX-PFIZER INC-2012065009

PATIENT
  Age: 91 Year
  Sex: Female
  Weight: 65 kg

DRUGS (2)
  1. LYRICA [Suspect]
     Indication: TREMOR
     Dosage: 75 MG EVERY THIRD DAY
     Route: 048
     Dates: start: 20120113, end: 20120117
  2. LYRICA [Suspect]

REACTIONS (5)
  - ANXIETY [None]
  - BEDRIDDEN [None]
  - SOMNOLENCE [None]
  - NECK PAIN [None]
  - DIZZINESS [None]
